FAERS Safety Report 4277608-X (Version None)
Quarter: 2004Q1

REPORT INFORMATION
  Report Type: 
  Country: None (occurrence: None)
  Receive Date: 20040121
  Receipt Date: 20040112
  Transmission Date: 20041129
  Serious: Yes (Life-Threatening, Hospitalization, Other)
  Sender: FDA-Public Use
  Company Number: US-SHR-03-012764

PATIENT
  Age: 51 Year
  Sex: Female

DRUGS (1)
  1. MAGNEVIST [Suspect]
     Indication: EPIDURAL ANAESTHESIA
     Dosage: 4 TO 4.5 ML , 1 DOSE, INTRATHECAL
     Route: 037
     Dates: start: 20030807, end: 20030807

REACTIONS (17)
  - AMNESTIC DISORDER [None]
  - ANAESTHETIC COMPLICATION [None]
  - BALANCE DISORDER [None]
  - BRAIN MASS [None]
  - BRAIN SCAN ABNORMAL [None]
  - CEREBRAL HAEMANGIOMA [None]
  - COGNITIVE DISORDER [None]
  - CONFUSIONAL STATE [None]
  - CONVULSION [None]
  - CSF WHITE BLOOD CELL COUNT POSITIVE [None]
  - DELIRIUM [None]
  - DRUG TOXICITY [None]
  - ELECTROENCEPHALOGRAM ABNORMAL [None]
  - ENCEPHALOPATHY [None]
  - FATIGUE [None]
  - GAIT DISTURBANCE [None]
  - POST PROCEDURAL COMPLICATION [None]
